FAERS Safety Report 21612850 (Version 3)
Quarter: 2023Q2

REPORT INFORMATION
  Report Type: Spontaneous
  Country: PT (occurrence: PT)
  Receive Date: 20221118
  Receipt Date: 20230522
  Transmission Date: 20230721
  Serious: Yes (Life-Threatening, Hospitalization, Other)
  Sender: FDA-Public Use
  Company Number: PT-ASTELLAS-2022US038265

PATIENT
  Age: 43 Year
  Sex: Male

DRUGS (28)
  1. AMOXICILLIN\CLAVULANIC ACID [Suspect]
     Active Substance: AMOXICILLIN\CLAVULANIC ACID
     Indication: Pyrexia
     Dosage: UNK
     Route: 065
  2. AMOXICILLIN\CLAVULANIC ACID [Suspect]
     Active Substance: AMOXICILLIN\CLAVULANIC ACID
     Indication: Odynophagia
  3. AMOXICILLIN\CLAVULANIC ACID [Suspect]
     Active Substance: AMOXICILLIN\CLAVULANIC ACID
     Indication: Tonsillitis
  4. MEROPENEM [Suspect]
     Active Substance: MEROPENEM
     Indication: Lymphadenopathy
     Dosage: UNK
     Route: 065
  5. MEROPENEM [Suspect]
     Active Substance: MEROPENEM
     Indication: Odynophagia
  6. MEROPENEM [Suspect]
     Active Substance: MEROPENEM
     Indication: Lymphadenopathy
  7. PIPERACILLIN AND TAZOBACTAM [Suspect]
     Active Substance: PIPERACILLIN SODIUM\TAZOBACTAM SODIUM
     Indication: Lymphadenopathy
     Dosage: UNK
     Route: 065
  8. PIPERACILLIN AND TAZOBACTAM [Suspect]
     Active Substance: PIPERACILLIN SODIUM\TAZOBACTAM SODIUM
     Indication: Lymphadenopathy
  9. PIPERACILLIN AND TAZOBACTAM [Suspect]
     Active Substance: PIPERACILLIN SODIUM\TAZOBACTAM SODIUM
     Indication: Odynophagia
  10. VANCOMYCIN [Suspect]
     Active Substance: VANCOMYCIN
     Indication: Odynophagia
     Dosage: UNK
     Route: 065
  11. VANCOMYCIN [Suspect]
     Active Substance: VANCOMYCIN
     Indication: Lymphadenopathy
  12. VANCOMYCIN [Suspect]
     Active Substance: VANCOMYCIN
     Indication: Lymphadenopathy
  13. PENICILLIN G [Suspect]
     Active Substance: PENICILLIN G
     Indication: Odynophagia
     Dosage: 3 DOSAGE FORM
     Route: 065
  14. PENICILLIN G [Suspect]
     Active Substance: PENICILLIN G
     Indication: Tonsillitis
  15. PENICILLIN G [Suspect]
     Active Substance: PENICILLIN G
     Indication: Pyrexia
  16. PENICILLIN G BENZATHINE [Suspect]
     Active Substance: PENICILLIN G BENZATHINE
     Indication: Odynophagia
     Dosage: UNK
     Route: 065
  17. PENICILLIN G BENZATHINE [Suspect]
     Active Substance: PENICILLIN G BENZATHINE
     Indication: Pyrexia
  18. PENICILLIN G BENZATHINE\PENICILLIN G POTASSIUM\PENICILLIN G PROCAINE [Suspect]
     Active Substance: PENICILLIN G BENZATHINE\PENICILLIN G POTASSIUM\PENICILLIN G PROCAINE
     Indication: Pyrexia
     Dosage: 3 DOSAGE FORM (3 DOSAGES)
     Route: 065
  19. PENICILLIN G BENZATHINE\PENICILLIN G POTASSIUM\PENICILLIN G PROCAINE [Suspect]
     Active Substance: PENICILLIN G BENZATHINE\PENICILLIN G POTASSIUM\PENICILLIN G PROCAINE
     Indication: Odynophagia
  20. FILGRASTIM [Suspect]
     Active Substance: FILGRASTIM
     Indication: Lymphadenopathy
     Dosage: UNK
     Route: 065
  21. FILGRASTIM [Suspect]
     Active Substance: FILGRASTIM
     Indication: Lymphadenopathy
  22. FILGRASTIM [Suspect]
     Active Substance: FILGRASTIM
     Indication: Odynophagia
  23. FILGRASTIM [Concomitant]
     Active Substance: FILGRASTIM
     Indication: Lymphadenopathy
     Dosage: UNK
     Route: 065
  24. FILGRASTIM [Concomitant]
     Active Substance: FILGRASTIM
     Indication: Lymphadenopathy
  25. FILGRASTIM [Concomitant]
     Active Substance: FILGRASTIM
     Indication: Odynophagia
  26. VANCOMYCIN [Concomitant]
     Active Substance: VANCOMYCIN
     Indication: Lymphadenopathy
     Dosage: UNK
     Route: 065
  27. VANCOMYCIN [Concomitant]
     Active Substance: VANCOMYCIN
     Indication: Lymphadenopathy
  28. VANCOMYCIN [Concomitant]
     Active Substance: VANCOMYCIN
     Indication: Odynophagia

REACTIONS (6)
  - Agranulocytosis [Recovered/Resolved]
  - Odynophagia [Recovered/Resolved]
  - Pyrexia [Recovered/Resolved]
  - Leukopenia [Recovered/Resolved]
  - Lymphadenopathy [Recovered/Resolved]
  - Off label use [Unknown]
